FAERS Safety Report 10502774 (Version 1)
Quarter: 2014Q4

REPORT INFORMATION
  Report Type: Spontaneous
  Country: IT (occurrence: None)
  Receive Date: 20141003
  Receipt Date: 20141003
  Transmission Date: 20150528
  Serious: Yes (Other)
  Sender: FDA-Public Use
  Company Number: 2556813

PATIENT
  Age: 84 Year
  Sex: Male

DRUGS (1)
  1. IRINOTECAN HYDROCHLORIDE. [Suspect]
     Active Substance: IRINOTECAN HYDROCHLORIDE
     Indication: COLON CANCER
     Dosage: CYCLICAL, IV (NOT OTHERWISE SPECIFIED)
     Route: 042
     Dates: start: 20140516, end: 20140617

REACTIONS (3)
  - Rash papular [None]
  - Transaminases increased [None]
  - Angioedema [None]

NARRATIVE: CASE EVENT DATE: 20140604
